FAERS Safety Report 12208900 (Version 1)
Quarter: 2016Q1

REPORT INFORMATION
  Report Type: Spontaneous
  Country: US (occurrence: US)
  Receive Date: 20160324
  Receipt Date: 20160324
  Transmission Date: 20160526
  Serious: No
  Sender: FDA-Public Use
  Company Number: US-PFIZER INC-2016154390

PATIENT
  Age: 82 Year
  Sex: Female
  Weight: 45.35 kg

DRUGS (3)
  1. INLYTA [Suspect]
     Active Substance: AXITINIB
     Dosage: 8 MG, 2X/DAY, IN THE MORNING AND IN THE NIGHT
     Route: 048
  2. INLYTA [Suspect]
     Active Substance: AXITINIB
     Indication: MALIGNANT NEOPLASM OF EYE
     Dosage: 5 MG, 2X/DAY, IN THE MORNING AND IN THE NIGHT
     Route: 048
     Dates: start: 20120701
  3. PROCHLORPERAZINE. [Concomitant]
     Active Substance: PROCHLORPERAZINE
     Indication: NAUSEA
     Dosage: 10 MG, AS NEEDED, EVERY 6 HOURS
     Route: 048

REACTIONS (5)
  - Disease progression [Unknown]
  - Product use issue [Unknown]
  - Malaise [Not Recovered/Not Resolved]
  - Weight decreased [Unknown]
  - Malignant neoplasm of eye [Unknown]
